FAERS Safety Report 6559187-7 (Version None)
Quarter: 2010Q1

REPORT INFORMATION
  Report Type: 
  Country: None (occurrence: None)
  Receive Date: 20100129
  Receipt Date: 20090914
  Transmission Date: 20100710
  Serious: No
  Sender: FDA-Public Use
  Company Number: US-ABBOTT-09P-163-0578623-00

PATIENT
  Sex: Female

DRUGS (2)
  1. HUMIRA [Suspect]
     Indication: CROHN'S DISEASE
  2. HUMIRA [Suspect]

REACTIONS (5)
  - ARTHRALGIA [None]
  - BONE PAIN [None]
  - CHILLS [None]
  - DRUG INEFFECTIVE [None]
  - PYREXIA [None]
